FAERS Safety Report 11866161 (Version 1)
Quarter: 2015Q4

REPORT INFORMATION
  Report Type: Spontaneous
  Country: US (occurrence: US)
  Receive Date: 20151223
  Receipt Date: 20151223
  Transmission Date: 20160305
  Serious: Yes (Other)
  Sender: FDA-Public Use
  Company Number: US-TEVA-620451USA

PATIENT
  Sex: Female
  Weight: 63.56 kg

DRUGS (1)
  1. HYDRALAZINE [Suspect]
     Active Substance: HYDRALAZINE HYDROCHLORIDE
     Route: 065
     Dates: start: 20150918

REACTIONS (3)
  - Pollakiuria [Unknown]
  - Rash [Unknown]
  - Swelling face [Unknown]
